FAERS Safety Report 9236270 (Version 1)
Quarter: 2013Q2

REPORT INFORMATION
  Report Type: Report from Study
  Country: US (occurrence: US)
  Receive Date: 20130417
  Receipt Date: 20130417
  Transmission Date: 20140414
  Serious: Yes (Hospitalization)
  Sender: FDA-Public Use
  Company Number: US-ACTELION-A-NJ2013-82093

PATIENT
  Age: 48 Year
  Sex: Female

DRUGS (2)
  1. VENTAVIS [Suspect]
     Indication: COR PULMONALE CHRONIC
     Dosage: UNK
     Route: 055
  2. LETAIRIS [Concomitant]

REACTIONS (2)
  - Blood potassium decreased [Unknown]
  - Heart rate increased [Unknown]
